FAERS Safety Report 6402912-6 (Version None)
Quarter: 2009Q4

REPORT INFORMATION
  Report Type: 
  Country: None (occurrence: None)
  Receive Date: 20091014
  Receipt Date: 20091014
  Transmission Date: 20100525
  Serious: Yes (Other)
  Sender: FDA-Public Use
  Company Number: None

PATIENT
  Age: 62 Year
  Sex: Female
  Weight: 70 kg

DRUGS (1)
  1. ZYFLO CR [Suspect]
     Indication: ASTHMA
     Dosage: 2 TABS 600MG TWICE A DAY ORAL 047
     Route: 048
     Dates: start: 20090921, end: 20090926

REACTIONS (8)
  - ACNE [None]
  - BURNING SENSATION [None]
  - INSOMNIA [None]
  - MIDDLE INSOMNIA [None]
  - NO THERAPEUTIC RESPONSE [None]
  - PAIN [None]
  - PRURITUS [None]
  - SKIN PAPILLOMA [None]
